FAERS Safety Report 12377774 (Version 1)
Quarter: 2016Q2

REPORT INFORMATION
  Report Type: Spontaneous
  Country: US (occurrence: US)
  Receive Date: 20160517
  Receipt Date: 20160517
  Transmission Date: 20160815
  Serious: No
  Sender: FDA-Public Use
  Company Number: US-MALLINCKRODT-T201600096

PATIENT
  Sex: Male
  Weight: 99 kg

DRUGS (9)
  1. OXYCODONE AND ACETAMINOPHEN [Concomitant]
     Active Substance: ACETAMINOPHEN\OXYCODONE HYDROCHLORIDE
     Dosage: PRN
  2. HYDROMORPHONE [Concomitant]
     Active Substance: HYDROMORPHONE
     Dosage: 32MG;UNK
  3. H.P. ACTHAR [Suspect]
     Active Substance: CORTICOTROPIN
     Dosage: 80 UNITS TWICE WEEKLY
     Route: 065
     Dates: start: 20150901, end: 20160208
  4. H.P. ACTHAR [Suspect]
     Active Substance: CORTICOTROPIN
     Indication: PSORIATIC ARTHROPATHY
     Dosage: 80 UNTIS TWICE WKLY FOR 7 WKS
     Route: 065
     Dates: start: 201512
  5. RANITIDINE. [Concomitant]
     Active Substance: RANITIDINE
     Dosage: 150MG:UNK
  6. OTEZLA [Concomitant]
     Active Substance: APREMILAST
  7. GABAPENTIN. [Concomitant]
     Active Substance: GABAPENTIN
  8. LISINOPRIL. [Concomitant]
     Active Substance: LISINOPRIL
     Dosage: 20MG;UNK
  9. TESTOSTERONE. [Concomitant]
     Active Substance: TESTOSTERONE
     Dosage: ^200^

REACTIONS (4)
  - Palpitations [Unknown]
  - Heart rate increased [Unknown]
  - Drug ineffective [Not Recovered/Not Resolved]
  - Paraesthesia oral [Unknown]
